FAERS Safety Report 23029300 (Version 2)
Quarter: 2023Q4

REPORT INFORMATION
  Report Type: Report from Study
  Country: US (occurrence: US)
  Receive Date: 20231004
  Receipt Date: 20231013
  Transmission Date: 20240110
  Serious: Yes (Other)
  Sender: FDA-Public Use
  Company Number: US-ASTELLAS-2023EU003285

PATIENT
  Sex: Male

DRUGS (2)
  1. ENZALUTAMIDE [Suspect]
     Active Substance: ENZALUTAMIDE
     Indication: Prostate cancer
     Route: 048
  2. LISINOPRIL [Concomitant]
     Active Substance: LISINOPRIL
     Indication: Product used for unknown indication
     Route: 065

REACTIONS (17)
  - Malignant neoplasm progression [Unknown]
  - Fatigue [Unknown]
  - Asthenia [Unknown]
  - Nausea [Unknown]
  - Decreased appetite [Unknown]
  - Dyspnoea [Unknown]
  - Depression [Unknown]
  - Atrial fibrillation [Unknown]
  - Hypertension [Unknown]
  - Decreased interest [Unknown]
  - Hypersomnia [Unknown]
  - Taste disorder [Unknown]
  - Back pain [Recovered/Resolved]
  - Food refusal [Recovered/Resolved]
  - Slow speech [Recovered/Resolved]
  - Depressed mood [Recovered/Resolved]
  - Product dose omission in error [Recovered/Resolved]
